FAERS Safety Report 7441452-2 (Version None)
Quarter: 2011Q2

REPORT INFORMATION
  Report Type: 
  Country: None (occurrence: None)
  Receive Date: 20110428
  Receipt Date: 20110422
  Transmission Date: 20111010
  Serious: Yes (Other)
  Sender: FDA-Public Use
  Company Number: US-JNJFOC-20100806103

PATIENT
  Sex: Male

DRUGS (1)
  1. LEVOFLOXACIN [Suspect]
     Indication: ILL-DEFINED DISORDER
     Route: 048

REACTIONS (4)
  - TENDON RUPTURE [None]
  - TENDONITIS [None]
  - MUSCLE RUPTURE [None]
  - JOINT INJURY [None]
